FAERS Safety Report 9442932 (Version 1)
Quarter: 2013Q3

REPORT INFORMATION
  Report Type: Spontaneous
  Country: US (occurrence: None)
  Receive Date: 20130805
  Receipt Date: 20130805
  Transmission Date: 20140515
  Serious: Yes (Other)
  Sender: FDA-Public Use
  Company Number: None

PATIENT
  Age: 29 Year
  Sex: Female
  Weight: 37.2 kg

DRUGS (1)
  1. LEVOFLOXACIN [Suspect]
     Indication: SINUSITIS BACTERIAL
     Dosage: 500 MG - 20 ML- 1X PO
     Route: 048
     Dates: start: 20130801, end: 20130803

REACTIONS (1)
  - Tendonitis [None]
